FAERS Safety Report 8173055-9 (Version None)
Quarter: 2012Q1

REPORT INFORMATION
  Report Type: 
  Country: None (occurrence: None)
  Receive Date: 20120223
  Receipt Date: 20120213
  Transmission Date: 20120608
  Serious: Yes (Hospitalization)
  Sender: FDA-Public Use
  Company Number: 2012020171

PATIENT
  Age: 65 Year
  Sex: Female
  Weight: 47.6277 kg

DRUGS (10)
  1. ALLEGRA [Concomitant]
  2. PRILOSEC [Concomitant]
  3. SYMBICORT [Concomitant]
  4. TAZORAC [Concomitant]
  5. ASTEPRO [Suspect]
     Indication: RHINITIS ALLERGIC
     Dosage: 1644 MCG (822 MCG, 2 IN 1 D), IN, (822 MG, ONCE DAILY IIN PM), IN
     Dates: start: 20111201, end: 20111201
  6. ASTEPRO [Suspect]
     Indication: RHINITIS ALLERGIC
     Dosage: 1644 MCG (822 MCG, 2 IN 1 D), IN, (822 MG, ONCE DAILY IIN PM), IN
     Dates: start: 20111201, end: 20111201
  7. SINGULAIR [Concomitant]
  8. NASONEX (MOMETASONE) [Concomitant]
  9. EVAMIST (ESTRADIOL) [Concomitant]
  10. VAGIFEM [Concomitant]

REACTIONS (8)
  - SYNCOPE [None]
  - FATIGUE [None]
  - SOMNOLENCE [None]
  - DIZZINESS [None]
  - LOSS OF CONSCIOUSNESS [None]
  - TACHYCARDIA [None]
  - HEAD INJURY [None]
  - CONCUSSION [None]
